FAERS Safety Report 11037803 (Version 1)
Quarter: 2015Q2

REPORT INFORMATION
  Report Type: Spontaneous
  Country: US (occurrence: None)
  Receive Date: 20150415
  Receipt Date: 20150415
  Transmission Date: 20150821
  Serious: Yes (Life-Threatening, Disabling)
  Sender: FDA-Public Use
  Company Number: None

PATIENT
  Age: 33 Year
  Sex: Male
  Weight: 97.98 kg

DRUGS (13)
  1. HYDROCODONE5/325MG [Concomitant]
  2. DIPHENIHYDRAMINE [Concomitant]
  3. NUERONTIN [Concomitant]
  4. FLOVENT [Concomitant]
     Active Substance: FLUTICASONE PROPIONATE
  5. MALALEUCA [Concomitant]
  6. LORAZEPAM. [Concomitant]
     Active Substance: LORAZEPAM
  7. ONDANSETRON [Suspect]
     Active Substance: ONDANSETRON
     Indication: NAUSEA
     Route: 048
  8. ICY HOT [Concomitant]
     Active Substance: MENTHOL\METHYL SALICYLATE
  9. ONDANSETRON [Suspect]
     Active Substance: ONDANSETRON
     Indication: ABDOMINAL DISCOMFORT
     Route: 048
  10. HELIOS [Concomitant]
  11. ATIVAN/HALDOL [Concomitant]
  12. ACIDOPHALUS [Concomitant]
  13. BIFIDOUS [Concomitant]

REACTIONS (8)
  - Loss of consciousness [None]
  - Hypersensitivity [None]
  - Cardiac disorder [None]
  - Dysgeusia [None]
  - Product quality issue [None]
  - Malaise [None]
  - Dyspnoea [None]
  - Glossodynia [None]

NARRATIVE: CASE EVENT DATE: 20150406
